FAERS Safety Report 15400053 (Version 1)
Quarter: 2018Q3

REPORT INFORMATION
  Report Type: Spontaneous
  Country: GB (occurrence: GB)
  Receive Date: 20180919
  Receipt Date: 20180919
  Transmission Date: 20181010
  Serious: Yes (Other)
  Sender: FDA-Public Use
  Company Number: GB-TEVA-2018-GB-955849

PATIENT
  Age: 46 Year
  Sex: Male
  Weight: 104.77 kg

DRUGS (4)
  1. TADALAFIL [Concomitant]
     Active Substance: TADALAFIL
  2. METFORMIN [Concomitant]
     Active Substance: METFORMIN HYDROCHLORIDE
  3. SIMVASTATIN. [Suspect]
     Active Substance: SIMVASTATIN
     Indication: BLOOD CHOLESTEROL INCREASED
     Dosage: 10?20MG
     Route: 048
     Dates: start: 201003, end: 201807
  4. VALSARTAN. [Concomitant]
     Active Substance: VALSARTAN

REACTIONS (3)
  - Lacrimation increased [Recovering/Resolving]
  - Dry eye [Recovering/Resolving]
  - Floppy eyelid syndrome [Recovering/Resolving]

NARRATIVE: CASE EVENT DATE: 201006
